FAERS Safety Report 19375283 (Version 7)
Quarter: 2021Q4

REPORT INFORMATION
  Report Type: Report from Study
  Country: US (occurrence: US)
  Receive Date: 20210604
  Receipt Date: 20211130
  Transmission Date: 20220303
  Serious: Yes (Hospitalization)
  Sender: FDA-Public Use
  Company Number: NVSC2021US124640

PATIENT
  Sex: Male

DRUGS (3)
  1. ENTRESTO [Suspect]
     Active Substance: SACUBITRIL\VALSARTAN
     Indication: Product used for unknown indication
     Dosage: 100 MG, BID (49/51 MG)
     Route: 048
     Dates: start: 20201219
  2. ENTRESTO [Suspect]
     Active Substance: SACUBITRIL\VALSARTAN
     Dosage: 100 MG, BID (49/51 MG)
     Route: 048
     Dates: start: 202012
  3. ENTRESTO [Suspect]
     Active Substance: SACUBITRIL\VALSARTAN
     Dosage: 24/26 MG, QD
     Route: 065

REACTIONS (14)
  - Bone cancer [Unknown]
  - Renal cancer [Unknown]
  - Cough [Unknown]
  - Pain [Unknown]
  - Dysarthria [Recovering/Resolving]
  - Weight decreased [Unknown]
  - Oropharyngeal pain [Unknown]
  - Ageusia [Unknown]
  - Dyspnoea [Unknown]
  - Eating disorder [Unknown]
  - Road traffic accident [Unknown]
  - Fatigue [Unknown]
  - Depression [Unknown]
  - Ejection fraction decreased [Unknown]
